FAERS Safety Report 12095443 (Version 1)
Quarter: 2016Q1

REPORT INFORMATION
  Report Type: Spontaneous
  Country: US (occurrence: US)
  Receive Date: 20160219
  Receipt Date: 20160219
  Transmission Date: 20160526
  Serious: Yes (Hospitalization, Other)
  Sender: FDA-Public Use
  Company Number: US-SA-2016SA031048

PATIENT
  Age: 72 Year
  Sex: Male

DRUGS (1)
  1. LOVENOX [Suspect]
     Active Substance: ENOXAPARIN SODIUM
     Indication: THROMBOSIS PROPHYLAXIS
     Dosage: START DATE OVER 2 MONTHS
     Route: 051

REACTIONS (6)
  - Back pain [Unknown]
  - Arthralgia [Unknown]
  - Platelet count decreased [Unknown]
  - Peripheral swelling [Unknown]
  - Skin discolouration [Unknown]
  - Pain in extremity [Unknown]
